FAERS Safety Report 7000974-9 (Version None)
Quarter: 2010Q3

REPORT INFORMATION
  Report Type: 
  Country: None (occurrence: None)
  Receive Date: 20100920
  Receipt Date: 20071106
  Transmission Date: 20110219
  Serious: Yes (Other)
  Sender: FDA-Public Use
  Company Number: US-ASTRAZENECA-2007UW06077

PATIENT
  Age: 431 Month
  Sex: Female
  Weight: 97.5 kg

DRUGS (6)
  1. SEROQUEL [Suspect]
     Indication: BIPOLAR DISORDER
     Route: 048
     Dates: start: 20010101, end: 20050101
  2. SEROQUEL [Suspect]
     Indication: DEPRESSION
     Route: 048
     Dates: start: 20010101, end: 20050101
  3. SEROQUEL [Suspect]
     Route: 048
     Dates: start: 20011112
  4. SEROQUEL [Suspect]
     Route: 048
     Dates: start: 20011112
  5. SYNTHROID [Concomitant]
     Dosage: 0.075 MG DAILY, 75 MCG
     Dates: start: 20000626, end: 20020214
  6. VITAMIN E [Concomitant]
     Dosage: 800 UNITS DAILY
     Dates: start: 20010301

REACTIONS (2)
  - DIABETES MELLITUS [None]
  - TYPE 2 DIABETES MELLITUS [None]
